FAERS Safety Report 7971672-X (Version None)
Quarter: 2011Q4

REPORT INFORMATION
  Report Type: 
  Country: None (occurrence: None)
  Receive Date: 20111212
  Receipt Date: 20111207
  Transmission Date: 20120403
  Serious: Yes (Other)
  Sender: FDA-Public Use
  Company Number: US-PFIZER INC-2011296791

PATIENT
  Sex: Female
  Weight: 60.317 kg

DRUGS (3)
  1. EFFEXOR [Suspect]
     Dosage: 150 MG, 1X/DAY
  2. EFFEXOR [Suspect]
     Dosage: UNK
     Dates: end: 20111202
  3. EFFEXOR [Suspect]
     Indication: DEPRESSION
     Dosage: 75 MG, 1X/DAY
     Dates: start: 20111115

REACTIONS (7)
  - DYSGRAPHIA [None]
  - HYPERSOMNIA [None]
  - HALLUCINATION [None]
  - READING DISORDER [None]
  - FEELING ABNORMAL [None]
  - VISUAL ACUITY REDUCED [None]
  - WEIGHT DECREASED [None]
